FAERS Safety Report 5252881-X (Version None)
Quarter: 2007Q1

REPORT INFORMATION
  Report Type: 
  Country: None (occurrence: None)
  Receive Date: 20070227
  Receipt Date: 20070215
  Transmission Date: 20070707
  Serious: Yes (Life-Threatening, Hospitalization)
  Sender: FDA-Public Use
  Company Number: MC200700146

PATIENT
  Age: 71 Year
  Sex: Male
  Weight: 92 kg

DRUGS (7)
  1. ANGIOMAX [Suspect]
     Dosage: 67.5 MG, BOLUS, IV BOLUS
     Route: 040
     Dates: start: 20060607, end: 20060607
  2. ANGIOMAX [Suspect]
     Dosage: 55.1 MG, HR, INTRAVENOUS
     Route: 042
     Dates: start: 20060607, end: 20060607
  3. FUROSEMIDE [Concomitant]
  4. CORDARONE /00133102/(AMIODARONE HYDROCHLORIDE) [Concomitant]
  5. ACENOCOUMAROL (ACENOCOUMAROL) [Concomitant]
  6. BERODUAL (FENOTEROL HYDROBROMIDE, IPRATROPIUM BROMIDE) [Concomitant]
  7. PREDNISONE TAB [Concomitant]

REACTIONS (6)
  - AORTIC VALVE REPLACEMENT [None]
  - BRADYCARDIA [None]
  - CORONARY ARTERY BYPASS [None]
  - EPISTAXIS [None]
  - PNEUMONIA ASPIRATION [None]
  - RESPIRATORY FAILURE [None]
